FAERS Safety Report 8456017 (Version 2)
Quarter: 2013Q1

REPORT INFORMATION
  Report Type: Spontaneous
  Country: DK (occurrence: None)
  Receive Date: 20120306
  Receipt Date: 20121031
  Transmission Date: 20140127
  Serious: Yes (Other)
  Sender: FDA-Public Use
  Company Number: 0226070

PATIENT
  Sex: Female

DRUGS (1)
  1. TACHOSIL [Suspect]
     Indication: POSTPARTUM HAEMORRHAGE

REACTIONS (4)
  - Medication residue present [None]
  - Off label use [None]
  - Maternal exposure during delivery [None]
  - Caesarean section [None]
